FAERS Safety Report 21195460 (Version 1)
Quarter: 2022Q3

REPORT INFORMATION
  Report Type: Report from Study
  Country: CN (occurrence: CN)
  Receive Date: 20220810
  Receipt Date: 20220810
  Transmission Date: 20221026
  Serious: No
  Sender: FDA-Public Use
  Company Number: CN-BAXTER-2021BAX002761

PATIENT
  Age: 51 Year
  Sex: Female
  Weight: 87 kg

DRUGS (13)
  1. AMINO ACIDS\DEXTROSE\ELECTROLYTES NOS\SOYBEAN OIL [Suspect]
     Active Substance: AMINO ACIDS\DEXTROSE\ELECTROLYTES NOS\SOYBEAN OIL
     Indication: Product used for unknown indication
     Dosage: 1500 MILLILITER (ML), AT AN INFUSION RATE OF 2.43 ML/KG/H
     Route: 065
     Dates: start: 20201210, end: 20201223
  2. NADROPARIN CALCIUM [Concomitant]
     Active Substance: NADROPARIN CALCIUM
     Indication: Anticoagulant therapy
     Dosage: 4100 IU, ONCE DAILY
     Route: 058
     Dates: start: 20201211, end: 20201223
  3. NADROPARIN CALCIUM [Concomitant]
     Active Substance: NADROPARIN CALCIUM
     Indication: Postoperative care
  4. PHLOROGLUCINOL [Concomitant]
     Active Substance: PHLOROGLUCINOL
     Indication: Postoperative analgesia
     Dosage: 120 MILLIGRAM (MG) ONCE DAILY ADMINISTERED VIA INTRAVENOUS (PERIPHERAL VEIN/CENTRAL VEIN)
     Route: 042
     Dates: start: 20201209, end: 20201220
  5. CEFTAZIDIME [Concomitant]
     Active Substance: CEFTAZIDIME
     Indication: Antiinflammatory therapy
     Dosage: 2 (G) GRAM THREE TIMES DAILY ADMINISTERED VIA INTRAVENOUS (PERIPHERAL VEIN/CENTRAL VEIN) ROUTE
     Route: 042
     Dates: start: 20201209, end: 20201213
  6. CEFTAZIDIME [Concomitant]
     Active Substance: CEFTAZIDIME
     Indication: Postoperative care
  7. ILAPRAZOLE [Concomitant]
     Active Substance: ILAPRAZOLE
     Indication: Postoperative care
     Dosage: 10 MILLIGRAM (MG) ONCE DAILY ADMINISTERED VIA INTRAVENOUS (PERIPHERAL VEIN/CENTRAL VEIN) ROUTE
     Route: 042
     Dates: start: 20201209, end: 20201222
  8. ILAPRAZOLE [Concomitant]
     Active Substance: ILAPRAZOLE
     Indication: Antacid therapy
  9. VITAMINS [Concomitant]
     Active Substance: VITAMINS
     Indication: Drug therapy
     Dosage: 5 ML (MILLILITER)
     Route: 065
     Dates: start: 20201210, end: 20201223
  10. UNSPECIFIED INGREDIENT [Concomitant]
     Active Substance: UNSPECIFIED INGREDIENT
     Indication: Drug therapy
     Dosage: 50 ML (MILLILITER)
     Route: 065
     Dates: start: 20201210, end: 20201223
  11. DEXTROSE [Concomitant]
     Active Substance: DEXTROSE
     Indication: Drug therapy
     Dosage: 100 MILLILITER (ML)
     Route: 065
     Dates: start: 20201210, end: 20201223
  12. STERILE WATER [Concomitant]
     Active Substance: WATER
     Indication: Drug therapy
     Dosage: 5 MILLILITER (ML)
     Route: 065
     Dates: start: 20201210, end: 20201223
  13. INSULIN NOS [Concomitant]
     Active Substance: INSULIN NOS
     Indication: Drug therapy
     Dosage: 26 IU
     Route: 065
     Dates: start: 20201210, end: 20201223

REACTIONS (1)
  - Post procedural complication [Recovered/Resolved]

NARRATIVE: CASE EVENT DATE: 20201218
